FAERS Safety Report 20813149 (Version 1)
Quarter: 2022Q2

REPORT INFORMATION
  Report Type: Spontaneous
  Country: US (occurrence: None)
  Receive Date: 20220510
  Receipt Date: 20220510
  Transmission Date: 20220721
  Serious: No
  Sender: FDA-Public Use
  Company Number: None

PATIENT
  Age: 77 Year
  Sex: Female
  Weight: 43.09 kg

DRUGS (19)
  1. INLYTA [Suspect]
     Active Substance: AXITINIB
     Indication: Renal cancer
     Dosage: 3MG BID ORALLY?
     Route: 048
     Dates: start: 202111
  2. PERIDEX [Concomitant]
     Active Substance: CHLORHEXIDINE GLUCONATE
  3. NITROGLYCERIN [Concomitant]
     Active Substance: NITROGLYCERIN
  4. AMLODIPINE [Concomitant]
     Active Substance: AMLODIPINE BESYLATE
  5. PROCHLORPERAZINE [Concomitant]
     Active Substance: PROCHLORPERAZINE
  6. METHADONE [Concomitant]
     Active Substance: METHADONE HYDROCHLORIDE
  7. OXYCODONE [Concomitant]
     Active Substance: OXYCODONE
  8. ESTRADIOL [Concomitant]
     Active Substance: ESTRADIOL
  9. LOPREAMIDE [Concomitant]
  10. PROVERA [Concomitant]
     Active Substance: MEDROXYPROGESTERONE ACETATE
  11. PRAVASTATIN [Concomitant]
     Active Substance: PRAVASTATIN
  12. HYDROCHLOROTHIAZIDE\LISINOPRIL [Concomitant]
     Active Substance: HYDROCHLOROTHIAZIDE\LISINOPRIL
  13. METOPROLOL SUCCINATE [Concomitant]
     Active Substance: METOPROLOL SUCCINATE
  14. ASPIRIN [Concomitant]
     Active Substance: ASPIRIN
  15. ZOFRAN [Concomitant]
     Active Substance: ONDANSETRON HYDROCHLORIDE
  16. PANTOPRAZOLE [Concomitant]
     Active Substance: PANTOPRAZOLE
  17. FINASTERIDE [Concomitant]
     Active Substance: FINASTERIDE
  18. TRAMADOL [Concomitant]
     Active Substance: TRAMADOL
  19. MELOXICAM [Concomitant]
     Active Substance: MELOXICAM

REACTIONS (1)
  - Disease progression [None]
